FAERS Safety Report 15807184 (Version 2)
Quarter: 2019Q1

REPORT INFORMATION
  Report Type: Spontaneous
  Country: GR (occurrence: GR)
  Receive Date: 20190110
  Receipt Date: 20190125
  Transmission Date: 20190417
  Serious: Yes (Other)
  Sender: FDA-Public Use
  Company Number: GR-MYLANLABS-2019M1001425

PATIENT
  Age: 70 Year
  Sex: Female

DRUGS (2)
  1. METHOTREXATE. [Suspect]
     Active Substance: METHOTREXATE
     Indication: TEMPORAL ARTERITIS
     Dosage: 15 MG, WEEKLY
  2. PREDNISOLONE. [Concomitant]
     Active Substance: PREDNISOLONE
     Indication: TEMPORAL ARTERITIS
     Dosage: UNK

REACTIONS (3)
  - Device use issue [Unknown]
  - Product use in unapproved indication [Unknown]
  - Pneumocystis jirovecii pneumonia [Unknown]
